FAERS Safety Report 9787246 (Version 5)
Quarter: 2014Q1

REPORT INFORMATION
  Report Type: Report from Study
  Country: CA (occurrence: CA)
  Receive Date: 20131229
  Receipt Date: 20140306
  Transmission Date: 20141002
  Serious: Yes (Other)
  Sender: FDA-Public Use
  Company Number: CA-ROCHE-1245519

PATIENT
  Age: 40 Year
  Sex: Male
  Weight: 72.4 kg

DRUGS (11)
  1. ACTEMRA [Suspect]
     Indication: RHEUMATOID ARTHRITIS
     Route: 042
     Dates: start: 20130507, end: 20131101
  2. RITUXAN [Suspect]
     Indication: RHEUMATOID ARTHRITIS
     Route: 042
     Dates: start: 20131211
  3. DIPHENHYDRAMINE HCL [Concomitant]
     Route: 048
     Dates: start: 20131211
  4. ARTHROTEC [Concomitant]
  5. METHOTREXATE [Concomitant]
  6. HYDROXYCHLOROQUINE [Concomitant]
  7. FOLIC ACID [Concomitant]
  8. AMLODIPINE [Concomitant]
  9. SYNTHROID [Concomitant]
  10. ACETAMINOPHEN [Concomitant]
     Route: 048
     Dates: start: 20131211
  11. METHYLPREDNISOLONE [Concomitant]
     Route: 042
     Dates: start: 20131211

REACTIONS (9)
  - Tooth disorder [Recovered/Resolved]
  - Haemorrhage [Not Recovered/Not Resolved]
  - Drug ineffective [Unknown]
  - Headache [Recovered/Resolved]
  - Nasopharyngitis [Recovering/Resolving]
  - Infusion related reaction [Unknown]
  - Blood pressure decreased [Unknown]
  - Procedural haemorrhage [Recovered/Resolved]
  - Pruritus [Recovered/Resolved]
